FAERS Safety Report 13521913 (Version 1)
Quarter: 2017Q2

REPORT INFORMATION
  Report Type: Spontaneous
  Country: US (occurrence: US)
  Receive Date: 20170508
  Receipt Date: 20170508
  Transmission Date: 20170830
  Serious: Yes (Other)
  Sender: FDA-Public Use
  Company Number: US-AMGEN-USASP2017068394

PATIENT
  Sex: Female
  Weight: 60.78 kg

DRUGS (3)
  1. ENBREL [Suspect]
     Active Substance: ETANERCEPT
     Indication: PRODUCT USED FOR UNKNOWN INDICATION
     Dosage: UNK
     Route: 065
     Dates: start: 2011
  2. ENBREL [Suspect]
     Active Substance: ETANERCEPT
     Dosage: UNK
     Route: 065
  3. XELJANZ [Suspect]
     Active Substance: TOFACITINIB CITRATE
     Indication: RHEUMATOID ARTHRITIS
     Dosage: 5 MG, QD
     Route: 048
     Dates: start: 201604

REACTIONS (16)
  - Arthralgia [Unknown]
  - Drug dose omission [Unknown]
  - Rash [Not Recovered/Not Resolved]
  - Immune system disorder [Unknown]
  - Rash pruritic [Unknown]
  - Mobility decreased [Unknown]
  - Chemotherapy [Unknown]
  - Bone disorder [Unknown]
  - Drug effect decreased [Unknown]
  - Gastric disorder [Unknown]
  - Vitamin C decreased [Unknown]
  - Vitamin D decreased [Unknown]
  - Musculoskeletal chest pain [Unknown]
  - Diarrhoea [Unknown]
  - Pain [Unknown]
  - Blister [Not Recovered/Not Resolved]

NARRATIVE: CASE EVENT DATE: 2017
